FAERS Safety Report 12447051 (Version 1)
Quarter: 2016Q2

REPORT INFORMATION
  Report Type: Spontaneous
  Country: US (occurrence: None)
  Receive Date: 20160607
  Receipt Date: 20160607
  Transmission Date: 20160815
  Serious: No
  Sender: FDA-Public Use
  Company Number: None

PATIENT
  Age: 51 Year
  Sex: Male

DRUGS (4)
  1. SIMPONI [Suspect]
     Active Substance: GOLIMUMAB
     Indication: PSORIATIC ARTHROPATHY
     Route: 058
     Dates: start: 20150401, end: 20160606
  2. PROPRANOLOL [Concomitant]
     Active Substance: PROPRANOLOL\PROPRANOLOL HYDROCHLORIDE
  3. CLONAZEPAM. [Concomitant]
     Active Substance: CLONAZEPAM
  4. CLARITIN [Concomitant]
     Active Substance: LORATADINE

REACTIONS (1)
  - Rosacea [None]

NARRATIVE: CASE EVENT DATE: 20160606
